FAERS Safety Report 6274635-8 (Version None)
Quarter: 2009Q3

REPORT INFORMATION
  Report Type: 
  Country: None (occurrence: None)
  Receive Date: 20090717
  Receipt Date: 20090702
  Transmission Date: 20100115
  Serious: Yes (Hospitalization)
  Sender: FDA-Public Use
  Company Number: 2009AL004426

PATIENT
  Age: 74 Year
  Sex: Male

DRUGS (17)
  1. DIGOXIN [Suspect]
     Dosage: 0.125MG, PO; 0.25MG, PO
     Route: 048
     Dates: start: 20070822, end: 20080319
  2. DIGOXIN [Suspect]
     Dosage: 0.125MG, PO; 0.25MG, PO
     Route: 048
     Dates: start: 20080319
  3. FLOMAX [Concomitant]
  4. REQUIP [Concomitant]
  5. ALPRAZOLAM [Concomitant]
  6. CLOPIDOGREL [Concomitant]
  7. LEXAPRO [Concomitant]
  8. FUROSEMIDE [Concomitant]
  9. KLOR-CON [Concomitant]
  10. ARICEPT [Concomitant]
  11. SPIRIVA [Concomitant]
  12. SEROQUEL [Concomitant]
  13. PLAVIX [Concomitant]
  14. CYANOCOBALAMIN [Concomitant]
  15. DILTIAZEM [Concomitant]
  16. SINGULAIR [Concomitant]
  17. AMIODARONE [Concomitant]

REACTIONS (10)
  - ABDOMINAL DISTENSION [None]
  - ASTHENIA [None]
  - BLOOD PRESSURE INCREASED [None]
  - BRADYCARDIA [None]
  - FLUID OVERLOAD [None]
  - OEDEMA PERIPHERAL [None]
  - RECTAL HAEMORRHAGE [None]
  - TACHYCARDIA [None]
  - THERAPEUTIC AGENT TOXICITY [None]
  - WEIGHT DECREASED [None]
